FAERS Safety Report 24693563 (Version 2)
Quarter: 2025Q3

REPORT INFORMATION
  Report Type: Report from Study
  Country: US (occurrence: US)
  Receive Date: 20241204
  Receipt Date: 20250819
  Transmission Date: 20251021
  Serious: No
  Sender: TAKEDA
  Company Number: US-TAKEDA-2023TUS116958

PATIENT
  Sex: Male
  Weight: 29 kg

DRUGS (13)
  1. TEDUGLUTIDE [Suspect]
     Active Substance: TEDUGLUTIDE
     Indication: Short-bowel syndrome
     Dosage: 1.3 MILLIGRAM, QD
  2. TEDUGLUTIDE [Suspect]
     Active Substance: TEDUGLUTIDE
     Dosage: 1.5 MILLIGRAM, QD
  3. TEDUGLUTIDE [Suspect]
     Active Substance: TEDUGLUTIDE
     Dosage: 1.5 MILLIGRAM, QD
  4. TEDUGLUTIDE [Suspect]
     Active Substance: TEDUGLUTIDE
     Dosage: 1.8 MILLIGRAM, QD
  5. CALCIUM CARBONATE [Concomitant]
     Active Substance: CALCIUM CARBONATE
  6. HYDROCORTISONE [Concomitant]
     Active Substance: HYDROCORTISONE
  7. SOLU-CORTEF [Concomitant]
     Active Substance: HYDROCORTISONE SODIUM SUCCINATE
  8. BUDESONIDE [Concomitant]
     Active Substance: BUDESONIDE
  9. SULFAMETHOXAZOLE AND TRIMETHOPRIM [Concomitant]
     Active Substance: SULFAMETHOXAZOLE\TRIMETHOPRIM
  10. VENOFER [Concomitant]
     Active Substance: IRON SUCROSE
  11. METRONIDAZOLE [Concomitant]
     Active Substance: METRONIDAZOLE
  12. VANCOMYCIN [Concomitant]
     Active Substance: VANCOMYCIN
  13. IRON [Concomitant]
     Active Substance: IRON

REACTIONS (3)
  - Illness [Unknown]
  - Insurance issue [Unknown]
  - Product use issue [Unknown]
